FAERS Safety Report 20444264 (Version 1)
Quarter: 2022Q1

REPORT INFORMATION
  Report Type: Spontaneous
  Country: IT (occurrence: IT)
  Receive Date: 20220208
  Receipt Date: 20220208
  Transmission Date: 20220424
  Serious: Yes (Other)
  Sender: FDA-Public Use
  Company Number: None

PATIENT
  Age: 75 Year
  Sex: Male
  Weight: 82 kg

DRUGS (2)
  1. INLYTA [Suspect]
     Active Substance: AXITINIB
     Indication: Renal cancer metastatic
     Dosage: 6 MG, 1X/DAY
     Route: 048
     Dates: start: 20210702, end: 20211210
  2. KEYTRUDA [Suspect]
     Active Substance: PEMBROLIZUMAB
     Indication: Renal cancer metastatic
     Dosage: 200 MG, CYCLIC
     Route: 042
     Dates: start: 20210614, end: 20211210

REACTIONS (4)
  - Hypertriglyceridaemia [Recovering/Resolving]
  - Proteinuria [Recovering/Resolving]
  - Metabolic disorder [Recovering/Resolving]
  - Hyperglycaemia [Recovering/Resolving]

NARRATIVE: CASE EVENT DATE: 20211229
